FAERS Safety Report 15819235 (Version 1)
Quarter: 2019Q1

REPORT INFORMATION
  Report Type: Spontaneous
  Country: US (occurrence: US)
  Receive Date: 20190114
  Receipt Date: 20190114
  Transmission Date: 20190417
  Serious: No
  Sender: FDA-Public Use
  Company Number: US-ROCHE-2199341

PATIENT
  Sex: Male

DRUGS (2)
  1. GUANFACINE. [Concomitant]
     Active Substance: GUANFACINE
  2. NUTROPIN AQ [Suspect]
     Active Substance: SOMATROPIN
     Indication: HYPOPITUITARISM
     Dosage: AQ NUSPIN 10 INJ
     Route: 058
     Dates: start: 20170921

REACTIONS (2)
  - Product prescribing error [Unknown]
  - No adverse event [Unknown]
